FAERS Safety Report 8986309 (Version 2)
Quarter: 2013Q2

REPORT INFORMATION
  Report Type: Spontaneous
  Country: JP (occurrence: JP)
  Receive Date: 20121226
  Receipt Date: 20130403
  Transmission Date: 20140414
  Serious: Yes (Death)
  Sender: FDA-Public Use
  Company Number: JP-ELI_LILLY_AND_COMPANY-JP201212005281

PATIENT
  Age: 78 Year
  Sex: Female
  Weight: 33 kg

DRUGS (1)
  1. GEMZAR [Suspect]
     Indication: BREAST CANCER RECURRENT
     Dosage: 1250 MG/M2, UNK
     Route: 042
     Dates: start: 20120919, end: 20121121

REACTIONS (1)
  - Pulmonary embolism [Fatal]
